FAERS Safety Report 4701813-9 (Version None)
Quarter: 2005Q2

REPORT INFORMATION
  Report Type: 
  Country: None (occurrence: None)
  Receive Date: 20050627
  Receipt Date: 20050616
  Transmission Date: 20051028
  Serious: Yes (Hospitalization, Disabling, Other)
  Sender: FDA-Public Use
  Company Number: 2003-01-1245

PATIENT
  Age: 44 Year
  Sex: Male
  Weight: 86.1834 kg

DRUGS (6)
  1. PEG-INTRON [Suspect]
     Indication: HEPATITIS C
     Dosage: QW; SUBCUTANEOUS
     Route: 058
     Dates: start: 20020812, end: 20020916
  2. REBETOL [Suspect]
     Indication: HEPATITIS C
     Dosage: ORAL
     Route: 048
     Dates: start: 20020812, end: 20020916
  3. ACETAMINOPHEN [Concomitant]
  4. IBUPROFEN [Concomitant]
  5. METHADONE 40 MG QD FOR 15+ YEAR(S) [Concomitant]
  6. MILK THISTLE FRUIT [Concomitant]

REACTIONS (23)
  - BLINDNESS UNILATERAL [None]
  - DIZZINESS [None]
  - EYE PAIN [None]
  - GLIOSIS [None]
  - HAEMATOCRIT DECREASED [None]
  - HAEMOGLOBIN DECREASED [None]
  - HEADACHE [None]
  - INFECTION [None]
  - INJURY [None]
  - MUSCLE SPASMS [None]
  - NAUSEA [None]
  - OPTIC ATROPHY [None]
  - OPTIC ISCHAEMIC NEUROPATHY [None]
  - OPTIC NEURITIS [None]
  - OTITIS MEDIA [None]
  - PAPILLOEDEMA [None]
  - PURULENCE [None]
  - RED BLOOD CELL COUNT DECREASED [None]
  - SCOTOMA [None]
  - VERTIGO [None]
  - VISION BLURRED [None]
  - VISUAL ACUITY REDUCED [None]
  - VOMITING [None]
